FAERS Safety Report 7359371-9 (Version None)
Quarter: 2011Q1

REPORT INFORMATION
  Report Type: 
  Country: None (occurrence: None)
  Receive Date: 20110310
  Receipt Date: 20110228
  Transmission Date: 20110831
  Serious: Yes (Hospitalization, Other)
  Sender: FDA-Public Use
  Company Number: 1000019043

PATIENT
  Age: 16 Year
  Sex: Male
  Weight: 70 kg

DRUGS (2)
  1. CODEIN (CODEINE PHOSPHATE) (DROPS (FOR ORAL USE)) [Suspect]
     Dosage: 240 MG, ONCE, ORAL
     Route: 048
     Dates: start: 20110220, end: 20110220
  2. ESCITALOPRAM [Suspect]
     Dosage: 100 MG, ONCE, ORAL
     Route: 048
     Dates: start: 20110220, end: 20110220

REACTIONS (3)
  - MULTIPLE DRUG OVERDOSE INTENTIONAL [None]
  - SUICIDE ATTEMPT [None]
  - SOPOR [None]
